FAERS Safety Report 20894988 (Version 1)
Quarter: 2022Q2

REPORT INFORMATION
  Report Type: Spontaneous
  Country: US (occurrence: US)
  Receive Date: 20220531
  Receipt Date: 20220531
  Transmission Date: 20220721
  Serious: No
  Sender: FDA-Public Use
  Company Number: US-BRISTOL-MYERS SQUIBB COMPANY-2022-035937

PATIENT
  Sex: Male

DRUGS (2)
  1. SPRYCEL [Suspect]
     Active Substance: DASATINIB
     Indication: Chronic myeloid leukaemia
     Dosage: DOSE : 100 MG;     FREQ : UNAV
     Dates: start: 2014
  2. SPRYCEL [Suspect]
     Active Substance: DASATINIB
     Dates: start: 2014

REACTIONS (2)
  - Bone pain [Unknown]
  - Myalgia [Unknown]
